FAERS Safety Report 15777000 (Version 1)
Quarter: 2018Q4

REPORT INFORMATION
  Report Type: Spontaneous
  Country: US (occurrence: US)
  Receive Date: 20181229
  Receipt Date: 20181229
  Transmission Date: 20190205
  Serious: No
  Sender: FDA-Public Use
  Company Number: None

PATIENT
  Age: 55 Year
  Sex: Female
  Weight: 75.15 kg

DRUGS (10)
  1. PROBIOTIC [Concomitant]
     Active Substance: PROBIOTICS NOS
  2. CALCIUM W/D [Concomitant]
  3. OTEZLA [Suspect]
     Active Substance: APREMILAST
     Indication: PSORIASIS
     Dosage: ?          QUANTITY:1 TABLET(S);?
     Route: 048
     Dates: start: 20181124, end: 20181228
  4. SKELAXIN [Concomitant]
     Active Substance: METAXALONE
  5. WOMEN^S MULTI-VITAMIN [Concomitant]
  6. OTEZLA [Suspect]
     Active Substance: APREMILAST
     Indication: ARTHRALGIA
     Dosage: ?          QUANTITY:1 TABLET(S);?
     Route: 048
     Dates: start: 20181124, end: 20181228
  7. PEPCID [Concomitant]
     Active Substance: FAMOTIDINE
  8. FISH OIL [Concomitant]
     Active Substance: FISH OIL
  9. GABAPENTIN. [Concomitant]
     Active Substance: GABAPENTIN
  10. PREMARIN [Concomitant]
     Active Substance: ESTROGENS, CONJUGATED

REACTIONS (9)
  - Diarrhoea [None]
  - Irritability [None]
  - Arthralgia [None]
  - Joint stiffness [None]
  - Gastrooesophageal reflux disease [None]
  - Nausea [None]
  - Headache [None]
  - Neuralgia [None]
  - Dry eye [None]

NARRATIVE: CASE EVENT DATE: 20181126
